FAERS Safety Report 9206369 (Version 2)
Quarter: 2013Q2

REPORT INFORMATION
  Report Type: Spontaneous
  Country: US (occurrence: None)
  Receive Date: 20130401
  Receipt Date: 20130408
  Transmission Date: 20140414
  Serious: No
  Sender: FDA-Public Use
  Company Number: ACO_34611_2013

PATIENT
  Age: 65 Year
  Sex: Female

DRUGS (4)
  1. AMPYRA [Suspect]
     Indication: GAIT DISTURBANCE
     Route: 048
  2. SYNTHROID (LEVOTHYROXINE SODIUM) [Concomitant]
  3. CALCIUM (CALCIUM) [Concomitant]
  4. MAGNESIUM (MAGNESIUM) [Concomitant]

REACTIONS (7)
  - Fall [None]
  - Limb injury [None]
  - Pain in extremity [None]
  - Dysgraphia [None]
  - Influenza [None]
  - Balance disorder [None]
  - Nasopharyngitis [None]
